FAERS Safety Report 16595953 (Version 1)
Quarter: 2019Q3

REPORT INFORMATION
  Report Type: Spontaneous
  Country: US (occurrence: US)
  Receive Date: 20190605
  Receipt Date: 20190605
  Transmission Date: 20191004
  Serious: Yes (Disabling)
  Sender: FDA-Public Use
  Company Number: None

PATIENT
  Age: 83 Year
  Sex: Female
  Weight: 74.84 kg

DRUGS (12)
  1. ALLEGRA [Concomitant]
     Active Substance: FEXOFENADINE HYDROCHLORIDE
  2. REFRESH EYE DROPS [Concomitant]
  3. MYRBETRIQ [Concomitant]
     Active Substance: MIRABEGRON
     Route: 048
     Dates: start: 20181218, end: 20181228
  4. RESTASIS [Concomitant]
     Active Substance: CYCLOSPORINE
  5. VALSARTAN. [Concomitant]
     Active Substance: VALSARTAN
  6. FLUTICASONE PROPIONATE. [Concomitant]
     Active Substance: FLUTICASONE PROPIONATE
  7. PRESERVISION EYE  VITAMINS [Concomitant]
  8. REFRESH NIGHTIME OINTMENT [Concomitant]
  9. AMLODIPINE [Concomitant]
     Active Substance: AMLODIPINE BESYLATE
  10. VITAMIN D3 [Concomitant]
     Active Substance: CHOLECALCIFEROL
  11. METAMUCIL [Concomitant]
     Active Substance: PLANTAGO SEED
  12. CALCIUM [Concomitant]
     Active Substance: CALCIUM

REACTIONS (2)
  - Blindness [None]
  - Balance disorder [None]
